FAERS Safety Report 6839114-5 (Version None)
Quarter: 2010Q3

REPORT INFORMATION
  Report Type: 
  Country: None (occurrence: None)
  Receive Date: 20100714
  Receipt Date: 20100617
  Transmission Date: 20110219
  Serious: Yes (Hospitalization, Other)
  Sender: FDA-Public Use
  Company Number: US-RANBAXY-2010US-32624

PATIENT

DRUGS (1)
  1. VERAPAMIL [Suspect]
     Indication: COMPLICATED MIGRAINE
     Dosage: 20 X 240 MG TABLETS (TOTAL DOSE 4.8 MG)
     Route: 048

REACTIONS (17)
  - ANURIA [None]
  - ATRIOVENTRICULAR BLOCK COMPLETE [None]
  - BRADYCARDIA [None]
  - BUNDLE BRANCH BLOCK RIGHT [None]
  - CARDIOGENIC SHOCK [None]
  - CARDIOTOXICITY [None]
  - DIZZINESS [None]
  - DRUG TOXICITY [None]
  - GRAND MAL CONVULSION [None]
  - HYPOTENSION [None]
  - ILEUS PARALYTIC [None]
  - OFF LABEL USE [None]
  - OVERDOSE [None]
  - PULMONARY OEDEMA [None]
  - RENAL FAILURE [None]
  - SOMNOLENCE [None]
  - SUICIDE ATTEMPT [None]
